FAERS Safety Report 14583898 (Version 2)
Quarter: 2018Q2

REPORT INFORMATION
  Report Type: Spontaneous
  Country: JP (occurrence: JP)
  Receive Date: 20180228
  Receipt Date: 20180412
  Transmission Date: 20180711
  Serious: Yes (Hospitalization)
  Sender: FDA-Public Use
  Company Number: JP-TEVA-2018-JP-865603

PATIENT

DRUGS (3)
  1. BENET [Suspect]
     Active Substance: RISEDRONATE SODIUM
     Indication: PRODUCT USED FOR UNKNOWN INDICATION
     Route: 048
  2. BENET [Suspect]
     Active Substance: RISEDRONATE SODIUM
     Route: 048
     Dates: start: 20180204
  3. BENET [Suspect]
     Active Substance: RISEDRONATE SODIUM
     Route: 048
     Dates: start: 20180211

REACTIONS (2)
  - Adverse event [Unknown]
  - Accidental overdose [Unknown]

NARRATIVE: CASE EVENT DATE: 20180211
